FAERS Safety Report 22057839 (Version 2)
Quarter: 2024Q1

REPORT INFORMATION
  Report Type: Report from Study
  Country: US (occurrence: US)
  Receive Date: 20230303
  Receipt Date: 20240227
  Transmission Date: 20240410
  Serious: No
  Sender: FDA-Public Use
  Company Number: US-ORG100014127-2022001395

PATIENT
  Age: 70 Year
  Sex: Female

DRUGS (10)
  1. METOPIRONE [Suspect]
     Active Substance: METYRAPONE
     Indication: Adrenal disorder
     Dosage: 2 CAPSULES (500 MG) AT BEDTIME
     Route: 048
     Dates: start: 20221126, end: 2023
  2. METOPIRONE [Suspect]
     Active Substance: METYRAPONE
     Indication: Adrenal disorder
     Dosage: 4 CAPSULES PER DAY
     Route: 048
     Dates: start: 20230619
  3. Ambien Tab 10 mg [Concomitant]
     Indication: Product used for unknown indication
  4. Crestor tab 5 mg [Concomitant]
     Indication: Product used for unknown indication
  5. Furosemide Tab 20 mg [Concomitant]
     Indication: Product used for unknown indication
  6. Irbesartan Tab 150 mg [Concomitant]
     Indication: Product used for unknown indication
  7. Procardia xl Tab 30 mg CR [Concomitant]
     Indication: Product used for unknown indication
  8. FAMOTIDINE TAB 20MG [Concomitant]
     Indication: Product used for unknown indication
  9. MOMETASONE CRE 0.1% [Concomitant]
     Indication: Product used for unknown indication
  10. SPIRONOLACTONE [Concomitant]
     Active Substance: SPIRONOLACTONE
     Indication: Product used for unknown indication

REACTIONS (4)
  - Back pain [Not Recovered/Not Resolved]
  - Vomiting [Unknown]
  - Drug ineffective [Not Recovered/Not Resolved]
  - Off label use [Not Recovered/Not Resolved]

NARRATIVE: CASE EVENT DATE: 20221126
